FAERS Safety Report 16445934 (Version 4)
Quarter: 2019Q4

REPORT INFORMATION
  Report Type: Report from Study
  Country: CN (occurrence: CN)
  Receive Date: 20190618
  Receipt Date: 20191003
  Transmission Date: 20200122
  Serious: Yes (Hospitalization)
  Sender: FDA-Public Use
  Company Number: CN-PFIZER INC-2019242567

PATIENT
  Age: 73 Year
  Sex: Male
  Weight: 74.5 kg

DRUGS (13)
  1. LORLATINIB [Suspect]
     Active Substance: LORLATINIB
     Indication: NON-SMALL CELL LUNG CANCER
     Dosage: 100 MG, 1X/DAY
     Route: 048
     Dates: start: 20180710, end: 20190604
  2. CEFTRIAXONE SODIUM. [Concomitant]
     Active Substance: CEFTRIAXONE SODIUM
  3. NIFEREX [POLYSACCHARIDE-IRON COMPLEX] [Concomitant]
  4. LEVOCARNITINE. [Concomitant]
     Active Substance: LEVOCARNITINE
  5. MEGLUMINE ADENOSINE CYCLOPHOSPHATE [Concomitant]
     Active Substance: ADENOSINE CYCLIC PHOSPHATE MEGLUMINE
  6. FORTRANS [MACROGOL 4000] [Concomitant]
     Dosage: ELECTROLYTE POWDER
  7. CARBAZOCHROME SODIUM SULFONATE [Concomitant]
     Active Substance: CARBAZOCHROME SODIUM SULFONATE
  8. LENTINAN [Concomitant]
     Active Substance: LENTINAN
  9. DOXOFYLLINE [Concomitant]
     Active Substance: DOXOFYLLINE
  10. POTASSIUM CHLORIDE. [Concomitant]
     Active Substance: POTASSIUM CHLORIDE
  11. PANTOPRAZOLE SODIUM. [Concomitant]
     Active Substance: PANTOPRAZOLE SODIUM
  12. AMLODIPINE BESYLATE. [Concomitant]
     Active Substance: AMLODIPINE BESYLATE
     Indication: HYPERTENSION
  13. CALCIUM DOBESILATE [Concomitant]
     Active Substance: CALCIUM DOBESILATE

REACTIONS (1)
  - Pneumonia [Recovering/Resolving]

NARRATIVE: CASE EVENT DATE: 20190516
